FAERS Safety Report 7672070-9 (Version None)
Quarter: 2011Q3

REPORT INFORMATION
  Report Type: 
  Country: None (occurrence: None)
  Receive Date: 20110809
  Receipt Date: 20110729
  Transmission Date: 20111222
  Serious: Yes (Other)
  Sender: FDA-Public Use
  Company Number: PHHY2011IT68952

PATIENT
  Age: 44 Year
  Sex: Female

DRUGS (1)
  1. EXTAVIA [Suspect]

REACTIONS (2)
  - ANAL HAEMORRHAGE [None]
  - GOITRE [None]
